FAERS Safety Report 23194740 (Version 3)
Quarter: 2024Q1

REPORT INFORMATION
  Report Type: Spontaneous
  Country: JP (occurrence: JP)
  Receive Date: 20231117
  Receipt Date: 20240215
  Transmission Date: 20240410
  Serious: Yes (Hospitalization, Other)
  Sender: FDA-Public Use
  Company Number: JP-Merck Healthcare KGaA-2023487224

PATIENT
  Age: 76 Year
  Sex: Male

DRUGS (4)
  1. METGLUCO [Suspect]
     Active Substance: METFORMIN HYDROCHLORIDE
     Indication: Type 2 diabetes mellitus
     Route: 048
  2. REPAGLINIDE [Suspect]
     Active Substance: REPAGLINIDE
     Indication: Product used for unknown indication
     Dosage: STARTS AT AGE 60
     Route: 048
     Dates: start: 202105, end: 202208
  3. CANAGLIFLOZIN [Suspect]
     Active Substance: CANAGLIFLOZIN
     Indication: Product used for unknown indication
     Dates: end: 202105
  4. TENELIGLIPTIN [Concomitant]
     Active Substance: TENELIGLIPTIN
     Indication: Product used for unknown indication
     Dates: end: 20230420

REACTIONS (7)
  - Bladder cancer [Unknown]
  - Metastases to liver [Recovering/Resolving]
  - Metastases to lymph nodes [Recovering/Resolving]
  - Metastases to kidney [Recovering/Resolving]
  - Metastases to abdominal wall [Recovering/Resolving]
  - Urinary tract infection [Unknown]
  - Post procedural infection [Unknown]

NARRATIVE: CASE EVENT DATE: 20201201
